FAERS Safety Report 8577053-2 (Version None)
Quarter: 2012Q2

REPORT INFORMATION
  Report Type: 
  Country: None (occurrence: None)
  Receive Date: 20120423
  Receipt Date: 20091130
  Transmission Date: 20120825
  Serious: Yes (Hospitalization)
  Sender: FDA-Public Use
  Company Number: PHEH2009US09148

PATIENT
  Age: 70 Year
  Sex: Female

DRUGS (16)
  1. ENSURE (AMINO ACIDS NOS, MINERALS NOS, VITAMINS NOS) [Concomitant]
  2. TRAVATAN [Concomitant]
  3. TEARS NATURALE (DEXTRAN 70, HYPROMELLOSE) [Concomitant]
  4. FUROSEMIDE [Concomitant]
  5. POTASSIUM CHLORIDE [Concomitant]
  6. ZYRTEC [Concomitant]
  7. NITROGLYCERIN [Concomitant]
  8. TETRACYCLINE [Concomitant]
  9. ASPIRIN [Concomitant]
  10. FOLIC ACID [Concomitant]
  11. FLEXERIL [Concomitant]
  12. EXJADE [Suspect]
     Indication: HEREDITARY HAEMOCHROMATOSIS
     Dosage: TWO 500 MG, DAILY,ORAL; DAILY, ORAL
     Route: 048
     Dates: start: 20090720
  13. EXJADE [Suspect]
     Indication: HEREDITARY HAEMOCHROMATOSIS
     Dosage: TWO 500 MG, DAILY,ORAL; DAILY, ORAL
     Route: 048
     Dates: start: 20090731, end: 20090811
  14. TOPROL-XL [Concomitant]
  15. WARFARIN SODIUM [Concomitant]
  16. MURO 128.5 (SODIUM CHLORIDE) [Concomitant]

REACTIONS (1)
  - VOMITING [None]
